FAERS Safety Report 8420073-9 (Version None)
Quarter: 2012Q2

REPORT INFORMATION
  Report Type: 
  Country: None (occurrence: None)
  Receive Date: 20120607
  Receipt Date: 20120530
  Transmission Date: 20120825
  Serious: Yes (Hospitalization)
  Sender: FDA-Public Use
  Company Number: US-JNJFOC-20120306839

PATIENT
  Sex: Female
  Weight: 52.62 kg

DRUGS (9)
  1. REMICADE [Suspect]
     Indication: PSORIASIS
     Route: 042
     Dates: start: 20100101, end: 20120101
  2. LASIX [Suspect]
     Indication: DIURETIC THERAPY
     Route: 048
     Dates: end: 20110101
  3. SYNTHROID [Concomitant]
     Indication: THYROID DISORDER
     Route: 048
  4. CARDIZEM [Concomitant]
     Route: 048
  5. CARDIZEM [Concomitant]
     Indication: BLOOD PRESSURE
     Dosage: DOSE INCREASED FROM 3 POINT TO 6 POINT SOMETHING
     Route: 048
  6. REMICADE [Suspect]
     Indication: ARTHRITIS
     Route: 042
     Dates: start: 20100101, end: 20120101
  7. REMICADE [Suspect]
     Route: 042
     Dates: start: 20090101
  8. LIPITOR [Concomitant]
     Indication: BLOOD CHOLESTEROL
     Route: 048
  9. REMICADE [Suspect]
     Route: 042
     Dates: start: 20090101

REACTIONS (6)
  - SKIN CANCER [None]
  - ABNORMAL LOSS OF WEIGHT [None]
  - ECHOCARDIOGRAM ABNORMAL [None]
  - MYOCARDIAL INFARCTION [None]
  - POLLAKIURIA [None]
  - CEREBROVASCULAR ACCIDENT [None]
